FAERS Safety Report 7649683-3 (Version None)
Quarter: 2011Q3

REPORT INFORMATION
  Report Type: 
  Country: None (occurrence: None)
  Receive Date: 20110802
  Receipt Date: 20110728
  Transmission Date: 20111222
  Serious: No
  Sender: FDA-Public Use
  Company Number: US-PFIZER INC-2011173251

PATIENT
  Sex: Female

DRUGS (2)
  1. ARIMIDEX [Suspect]
     Indication: NEOPLASM MALIGNANT
     Dosage: UNK
     Route: 048
  2. AROMASIN [Suspect]
     Indication: NEOPLASM MALIGNANT
     Dosage: UNK
     Route: 048

REACTIONS (1)
  - ARTHRALGIA [None]
